FAERS Safety Report 25340140 (Version 1)
Quarter: 2025Q2

REPORT INFORMATION
  Report Type: Spontaneous
  Country: US (occurrence: US)
  Receive Date: 20250521
  Receipt Date: 20250521
  Transmission Date: 20250716
  Serious: No
  Sender: CSL Plasma
  Company Number: US-CSLP-22001942700-V12517706-60

PATIENT
  Age: 38 Year
  Sex: Male

DRUGS (7)
  1. ANTICOAGULANT SODIUM CITRATE [Suspect]
     Active Substance: SODIUM CITRATE
     Indication: Anticoagulant therapy
     Route: 050
     Dates: start: 20250501, end: 20250501
  2. DULOXETINE [Concomitant]
     Active Substance: DULOXETINE
     Indication: Depression
  3. CLONIDINE [Concomitant]
     Active Substance: CLONIDINE
     Indication: Product used for unknown indication
  4. OMEPRAZOLE [Concomitant]
     Active Substance: OMEPRAZOLE
     Indication: Gastrooesophageal reflux disease
  5. BUPROPION [Concomitant]
     Active Substance: BUPROPION
     Indication: Mood swings
  6. HYDROCHLOROTHIAZIDE\LOSARTAN [Concomitant]
     Active Substance: HYDROCHLOROTHIAZIDE\LOSARTAN
     Indication: Hypertension
  7. SALINE [Concomitant]
     Active Substance: SODIUM CHLORIDE
     Indication: Product used for unknown indication
     Dates: start: 20250501, end: 20250501

REACTIONS (11)
  - Cold sweat [Recovered/Resolved]
  - Nausea [Recovered/Resolved]
  - Heart rate increased [Recovered/Resolved]
  - Muscle spasms [Recovered/Resolved]
  - Hyperhidrosis [Recovered/Resolved]
  - Pallor [Recovered/Resolved]
  - Hypoaesthesia [Recovered/Resolved]
  - Vomiting [Recovered/Resolved]
  - Tremor [Recovered/Resolved]
  - Chills [Recovered/Resolved]
  - Paraesthesia [Recovered/Resolved]

NARRATIVE: CASE EVENT DATE: 20250501
